FAERS Safety Report 7375456-5 (Version None)
Quarter: 2011Q1

REPORT INFORMATION
  Report Type: 
  Country: None (occurrence: None)
  Receive Date: 20110325
  Receipt Date: 20110315
  Transmission Date: 20110831
  Serious: Yes (Other)
  Sender: FDA-Public Use
  Company Number: BR-GENENTECH-304573

PATIENT
  Sex: Female
  Weight: 75 kg

DRUGS (8)
  1. METHOTREXATE [Concomitant]
     Dosage: UNK
  2. RITUXIMAB [Suspect]
     Indication: RHEUMATOID ARTHRITIS
     Dosage: 1000 MG/ML, 2/MONTH
     Route: 042
     Dates: start: 20091002, end: 20091016
  3. METHOTREXATE [Suspect]
     Indication: PRODUCT USED FOR UNKNOWN INDICATION
     Dosage: 2 TABLET, 1/WEEK
     Route: 065
  4. BENICAR [Concomitant]
     Indication: PRODUCT USED FOR UNKNOWN INDICATION
     Dosage: UNK
  5. GINKGO BILOBA [Concomitant]
     Indication: PRODUCT USED FOR UNKNOWN INDICATION
     Dosage: UNK
  6. CALCIUM CARBONATE [Concomitant]
     Indication: PRODUCT USED FOR UNKNOWN INDICATION
  7. HYDROXYCHLOROQUINE SULFATE [Concomitant]
     Indication: PRODUCT USED FOR UNKNOWN INDICATION
     Dosage: 400 MG, UNK
  8. CALCIUM [Concomitant]
     Indication: PRODUCT USED FOR UNKNOWN INDICATION
     Dosage: UNK

REACTIONS (14)
  - DEPRESSION [None]
  - ERYTHEMA [None]
  - LIVER DISORDER [None]
  - BLOOD CHOLESTEROL INCREASED [None]
  - ARTHRALGIA [None]
  - SWELLING [None]
  - ALANINE AMINOTRANSFERASE INCREASED [None]
  - BLOOD DISORDER [None]
  - DRUG INEFFECTIVE [None]
  - PAIN [None]
  - LOW DENSITY LIPOPROTEIN INCREASED [None]
  - ASPARTATE AMINOTRANSFERASE INCREASED [None]
  - RHEUMATOID FACTOR INCREASED [None]
  - RHEUMATOID FACTOR [None]
